FAERS Safety Report 8471539-7 (Version None)
Quarter: 2012Q2

REPORT INFORMATION
  Report Type: 
  Country: None (occurrence: None)
  Receive Date: 20120627
  Receipt Date: 20120621
  Transmission Date: 20120825
  Serious: Yes (Other)
  Sender: FDA-Public Use
  Company Number: US-ABBOTT-12P-163-0889996-00

PATIENT
  Sex: Male
  Weight: 113.5 kg

DRUGS (7)
  1. HUMIRA [Suspect]
     Dates: start: 20081001, end: 20100801
  2. METFORMIN HCL [Concomitant]
     Indication: DIABETES MELLITUS
  3. SIMVASTATIN [Concomitant]
     Indication: BLOOD CHOLESTEROL INCREASED
  4. HUMIRA [Suspect]
     Indication: PSORIASIS
     Route: 058
     Dates: start: 20070101, end: 20080601
  5. HUMIRA [Suspect]
  6. LISINOPRIL [Concomitant]
     Indication: HYPERTENSION
  7. PRILOSEC [Concomitant]
     Indication: GASTROOESOPHAGEAL REFLUX DISEASE

REACTIONS (4)
  - PROSTATE CANCER [None]
  - TUBERCULIN TEST POSITIVE [None]
  - PSORIASIS [None]
  - PROSTATIC SPECIFIC ANTIGEN INCREASED [None]
